FAERS Safety Report 16149885 (Version 1)
Quarter: 2019Q2

REPORT INFORMATION
  Report Type: Spontaneous
  Country: US (occurrence: US)
  Receive Date: 20190402
  Receipt Date: 20190402
  Transmission Date: 20190711
  Serious: Yes (Hospitalization)
  Sender: FDA-Public Use
  Company Number: None

PATIENT
  Age: 74 Year
  Sex: Female

DRUGS (2)
  1. XELJANZ [Suspect]
     Active Substance: TOFACITINIB CITRATE
     Indication: RHEUMATOID ARTHRITIS
     Route: 048
     Dates: start: 20180123, end: 20190218
  2. FORTEO [Concomitant]
     Active Substance: TERIPARATIDE

REACTIONS (7)
  - Hypoaesthesia eye [None]
  - Hypoaesthesia [None]
  - Product dose omission [None]
  - Hypoaesthesia oral [None]
  - Tenderness [None]
  - Symptom recurrence [None]
  - Herpes zoster [None]

NARRATIVE: CASE EVENT DATE: 20190218
